FAERS Safety Report 15172610 (Version 3)
Quarter: 2018Q3

REPORT INFORMATION
  Report Type: Spontaneous
  Country: US (occurrence: US)
  Receive Date: 20180720
  Receipt Date: 20180912
  Transmission Date: 20181010
  Serious: Yes (Death)
  Sender: FDA-Public Use
  Company Number: US-IMPAX LABORATORIES, INC-2018-IPXL-02232

PATIENT
  Age: 89 Year
  Sex: Male

DRUGS (2)
  1. RYTARY [Suspect]
     Active Substance: CARBIDOPA\LEVODOPA
     Indication: PARKINSON^S DISEASE
     Dosage: 36.25/145 MG, FOUR CAPSULES, FOUR TIMES A DAY
     Route: 065
     Dates: start: 20170217, end: 2018
  2. RYTARY [Suspect]
     Active Substance: CARBIDOPA\LEVODOPA
     Dosage: 36.25/145 MG, THREE CAPSULES, FOUR TIMES A DAY
     Route: 065
     Dates: start: 2018, end: 20180702

REACTIONS (7)
  - Diabetes mellitus [Fatal]
  - Drug effect variable [Unknown]
  - Dysphagia [Unknown]
  - Parkinson^s disease [Fatal]
  - Gait disturbance [Unknown]
  - Asthenia [Unknown]
  - Labelled drug-food interaction medication error [Unknown]
